FAERS Safety Report 9129962 (Version 2)
Quarter: 2013Q1

REPORT INFORMATION
  Report Type: Spontaneous
  Country: ES (occurrence: ES)
  Receive Date: 20130228
  Receipt Date: 20130307
  Transmission Date: 20140127
  Serious: Yes (Other)
  Sender: FDA-Public Use
  Company Number: ES-PFIZER INC-2013069351

PATIENT
  Age: 50 Year
  Sex: Male

DRUGS (1)
  1. PHENYTOIN SODIUM [Suspect]
     Indication: EPILEPSY
     Dosage: 250 MG/8 HOURS
     Route: 042

REACTIONS (3)
  - Ophthalmoplegia [Recovered/Resolved]
  - Toxicity to various agents [Recovering/Resolving]
  - Abasia [Recovered/Resolved]
